FAERS Safety Report 20034060 (Version 1)
Quarter: 2021Q4

REPORT INFORMATION
  Report Type: Report from Study
  Country: DE (occurrence: DE)
  Receive Date: 20211104
  Receipt Date: 20211104
  Transmission Date: 20220303
  Serious: Yes (Hospitalization)
  Sender: FDA-Public Use
  Company Number: DE-MYLANLABS-2021M1080968

PATIENT
  Age: 61 Year
  Sex: Male

DRUGS (2)
  1. ETOPOSIDE [Suspect]
     Active Substance: ETOPOSIDE
     Indication: Haematopoietic stem cell mobilisation
     Dosage: ON DAYS 1-3
     Route: 042
  2. CYCLOPHOSPHAMIDE [Suspect]
     Active Substance: CYCLOPHOSPHAMIDE
     Indication: Haematopoietic stem cell mobilisation
     Dosage: ON DAY 1
     Route: 042

REACTIONS (3)
  - Oesophagitis [Unknown]
  - Febrile neutropenia [Unknown]
  - Pharyngitis [Unknown]
